FAERS Safety Report 23124894 (Version 4)
Quarter: 2024Q2

REPORT INFORMATION
  Report Type: Spontaneous
  Country: IT (occurrence: IT)
  Receive Date: 20231030
  Receipt Date: 20240528
  Transmission Date: 20240716
  Serious: Yes (Other)
  Sender: FDA-Public Use
  Company Number: IT-ROCHE-3438627

PATIENT
  Age: 54 Year

DRUGS (10)
  1. PREDNISONE [Suspect]
     Active Substance: PREDNISONE
     Indication: Non-Hodgkin^s lymphoma stage II
     Dosage: UNK,(R-CHOP - CYCLOPHOSPHAMIDE, DOXORUBICIN, PREDNISONE, RITUXIMAB, VINCRISTINE)
     Route: 065
  2. DOXORUBICIN [Suspect]
     Active Substance: DOXORUBICIN
     Indication: Non-Hodgkin^s lymphoma stage II
     Dosage: UNK,(R-CHOP - CYCLOPHOSPHAMIDE, DOXORUBICIN, PREDNISONE, RITUXIMAB, VINCRISTINE)
     Route: 065
  3. BENDAMUSTINE [Suspect]
     Active Substance: BENDAMUSTINE
     Indication: Non-Hodgkin^s lymphoma stage II
     Dosage: UNK
     Route: 065
  4. BENDAMUSTINE [Suspect]
     Active Substance: BENDAMUSTINE
     Dosage: UNK,(R-BENDAMUSTINE - RITUXIMAB, BENDAMUSTINE)
     Route: 065
  5. EPCORITAMAB [Suspect]
     Active Substance: EPCORITAMAB
     Indication: Non-Hodgkin^s lymphoma stage II
     Dosage: UNK
     Route: 065
  6. RITUXIMAB [Suspect]
     Active Substance: RITUXIMAB
     Indication: Non-Hodgkin^s lymphoma stage II
     Dosage: UNK,(R-CHOP - CYCLOPHOSPHAMIDE, DOXORUBICIN, PREDNISONE, RITUXIMAB, VINCRISTINE)
     Route: 065
  7. RITUXIMAB [Suspect]
     Active Substance: RITUXIMAB
     Dosage: UNK,(R-BENDAMUSTINE - RITUXIMAB, BENDAMUSTINE)
     Route: 065
  8. RITUXIMAB [Suspect]
     Active Substance: RITUXIMAB
     Dosage: UNK
     Route: 065
  9. CYCLOPHOSPHAMIDE [Suspect]
     Active Substance: CYCLOPHOSPHAMIDE
     Indication: Non-Hodgkin^s lymphoma stage II
     Dosage: UNK,(R-CHOP - CYCLOPHOSPHAMIDE, DOXORUBICIN, PREDNISONE, RITUXIMAB, VINCRISTINE)
     Route: 065
  10. VINCRISTINE [Suspect]
     Active Substance: VINCRISTINE
     Indication: Non-Hodgkin^s lymphoma stage II
     Dosage: UNK,(R-CHOP - CYCLOPHOSPHAMIDE, DOXORUBICIN, PREDNISONE, RITUXIMAB, VINCRISTINE)
     Route: 065

REACTIONS (1)
  - COVID-19 [Recovered/Resolved]

NARRATIVE: CASE EVENT DATE: 20220601
